FAERS Safety Report 7621748-1 (Version None)
Quarter: 2011Q3

REPORT INFORMATION
  Report Type: 
  Country: None (occurrence: None)
  Receive Date: 20110719
  Receipt Date: 20110708
  Transmission Date: 20111222
  Serious: Yes (Other)
  Sender: FDA-Public Use
  Company Number: JP-ASTRAZENECA-2011SE31947

PATIENT
  Sex: Female
  Weight: 76.6 kg

DRUGS (16)
  1. SEROQUEL [Suspect]
     Indication: DISSOCIATIVE DISORDER
     Route: 048
  2. SEROQUEL [Suspect]
     Indication: DEPRESSION
     Route: 048
  3. WINTERMIN [Concomitant]
     Indication: DISSOCIATIVE DISORDER
     Route: 048
  4. RETICOLAN [Concomitant]
     Indication: DEPRESSION
     Route: 065
  5. ROHYPNOL [Concomitant]
     Indication: DEPRESSION
     Route: 048
  6. WINTERMIN [Concomitant]
     Indication: DEPRESSION
     Route: 048
  7. ROHYPNOL [Concomitant]
     Indication: DISSOCIATIVE DISORDER
     Route: 048
  8. NITRAZEPAM [Concomitant]
     Indication: DEPRESSION
     Route: 048
  9. RETICOLAN [Concomitant]
     Indication: DISSOCIATIVE DISORDER
     Route: 065
  10. ANAFRANIL [Concomitant]
     Indication: DEPRESSION
     Route: 048
  11. DOGMATYL [Suspect]
     Indication: DISSOCIATIVE DISORDER
     Route: 048
  12. DOGMATYL [Suspect]
     Indication: DEPRESSION
     Route: 048
  13. HIRNAMIN [Concomitant]
  14. DEPAKENE [Concomitant]
     Dosage: DIVIDED INTO 4 DOSES
  15. NITRAZEPAM [Concomitant]
     Indication: DISSOCIATIVE DISORDER
     Route: 048
  16. ANAFRANIL [Concomitant]
     Indication: DISSOCIATIVE DISORDER
     Route: 048

REACTIONS (2)
  - MATERNAL EXPOSURE DURING PREGNANCY [None]
  - OEDEMA PERIPHERAL [None]
